FAERS Safety Report 20720681 (Version 3)
Quarter: 2022Q4

REPORT INFORMATION
  Report Type: Spontaneous
  Country: FR (occurrence: FR)
  Receive Date: 20220418
  Receipt Date: 20221213
  Transmission Date: 20230113
  Serious: Yes (Death, Hospitalization)
  Sender: FDA-Public Use
  Company Number: FR-GLAXOSMITHKLINE-FR2022EME065591

PATIENT

DRUGS (4)
  1. BELANTAMAB MAFODOTIN [Suspect]
     Active Substance: BELANTAMAB MAFODOTIN
     Indication: Plasma cell myeloma
     Dosage: 160 MG, CYC (EVERY 3 WEEKS)
     Route: 042
     Dates: start: 20210420, end: 20210607
  2. BELANTAMAB MAFODOTIN [Suspect]
     Active Substance: BELANTAMAB MAFODOTIN
     Dosage: 160 MG, CYC (EVERY 3 WEEKS)
     Route: 042
     Dates: start: 20210512
  3. BELANTAMAB MAFODOTIN [Suspect]
     Active Substance: BELANTAMAB MAFODOTIN
     Dosage: 160 MG, CYC (EVERY 3 WEEKS)
     Route: 042
     Dates: start: 20210525
  4. BELANTAMAB MAFODOTIN [Suspect]
     Active Substance: BELANTAMAB MAFODOTIN
     Dosage: 1.9 MG/KG, CYC (EVERY 3 WEEKS)
     Route: 042
     Dates: start: 20210607

REACTIONS (4)
  - Jaundice [Fatal]
  - Keratopathy [Unknown]
  - Hyperthermia [Recovered/Resolved]
  - Visual acuity reduced [Unknown]

NARRATIVE: CASE EVENT DATE: 20210420
